FAERS Safety Report 14150496 (Version 1)
Quarter: 2017Q4

REPORT INFORMATION
  Report Type: Spontaneous
  Country: SA (occurrence: SA)
  Receive Date: 20171101
  Receipt Date: 20171101
  Transmission Date: 20180321
  Serious: No
  Sender: FDA-Public Use
  Company Number: SA-JAZZ-2017-SA-006984

PATIENT
  Age: 8 Year
  Sex: Female

DRUGS (1)
  1. DEFIBROTIDE (NPB) [Suspect]
     Active Substance: DEFIBROTIDE SODIUM
     Indication: VENOOCCLUSIVE DISEASE
     Dates: start: 20170507, end: 20170601

REACTIONS (1)
  - Off label use [Unknown]
